FAERS Safety Report 8842389 (Version 1)
Quarter: 2012Q4

REPORT INFORMATION
  Report Type: 
  Country: BB (occurrence: GB)
  Receive Date: 20121016
  Receipt Date: 20121016
  Transmission Date: 20130627
  Serious: Yes (Death, Hospitalization)
  Sender: FDA-Public Use
  Company Number: GB-B.I. PHARMACEUTICALS,INC./RIDGEFIELD-2012-UK-01433UK

PATIENT

DRUGS (1)
  1. DABIGATRAN [Suspect]

REACTIONS (1)
  - Haemorrhage [Fatal]
